FAERS Safety Report 4611540-4 (Version None)
Quarter: 2005Q1

REPORT INFORMATION
  Report Type: 
  Country: None (occurrence: None)
  Receive Date: 20050317
  Receipt Date: 20050304
  Transmission Date: 20050727
  Serious: Yes (Life-Threatening)
  Sender: FDA-Public Use
  Company Number: FR-ROCHE-397493

PATIENT
  Age: 34 Year
  Sex: Female

DRUGS (3)
  1. RIVOTRIL [Suspect]
     Indication: DRUG USE FOR UNKNOWN INDICATION
     Route: 042
     Dates: start: 20050126, end: 20050131
  2. ZOPHREN [Interacting]
     Indication: DRUG USE FOR UNKNOWN INDICATION
     Route: 042
     Dates: start: 20050127, end: 20050201
  3. ZOPHREN [Interacting]
     Route: 042
     Dates: start: 20050205

REACTIONS (4)
  - BRADYCARDIA [None]
  - DRUG INTERACTION [None]
  - DRUG INTOLERANCE [None]
  - HEADACHE [None]
